FAERS Safety Report 10660925 (Version 1)
Quarter: 2014Q4

REPORT INFORMATION
  Report Type: Spontaneous
  Country: US (occurrence: US)
  Receive Date: 20141218
  Receipt Date: 20141218
  Transmission Date: 20150529
  Serious: No
  Sender: FDA-Public Use
  Company Number: US-009507513-1412USA003873

PATIENT
  Age: 27 Year
  Sex: Female
  Weight: 68.27 kg

DRUGS (1)
  1. IMPLANON [Suspect]
     Active Substance: ETONOGESTREL
     Indication: CONTRACEPTION
     Dosage: UNK
     Route: 059
     Dates: start: 20111129

REACTIONS (3)
  - Menstruation irregular [Unknown]
  - Menstrual disorder [Unknown]
  - Weight increased [Unknown]

NARRATIVE: CASE EVENT DATE: 2011
